FAERS Safety Report 9051309 (Version 2)
Quarter: 2013Q1

REPORT INFORMATION
  Report Type: Spontaneous
  Country: TR (occurrence: TR)
  Receive Date: 20130206
  Receipt Date: 20130213
  Transmission Date: 20140127
  Serious: Yes (Other)
  Sender: FDA-Public Use
  Company Number: TR-RANBAXY-2013RR-64903

PATIENT
  Age: 32 Year
  Sex: Female

DRUGS (3)
  1. RISPERIDONE [Suspect]
     Indication: SCHIZOPHRENIA, PARANOID TYPE
     Dosage: 6 MG/DAY
     Route: 065
  2. RISPERIDONE [Suspect]
     Indication: SCHIZOPHRENIA, PARANOID TYPE
     Dosage: 2 MG/DAY
     Route: 065
  3. QUETIAPINE [Concomitant]
     Indication: SCHIZOPHRENIA, PARANOID TYPE
     Dosage: 400 MG/DAY
     Route: 065

REACTIONS (4)
  - Pituitary tumour benign [Unknown]
  - Acromegaly [Unknown]
  - Left ventricular dysfunction [Unknown]
  - Scotoma [Unknown]
